FAERS Safety Report 8987961 (Version 1)
Quarter: 2012Q4

REPORT INFORMATION
  Report Type: Report from Study
  Country: DE (occurrence: DE)
  Receive Date: 20121227
  Receipt Date: 20121227
  Transmission Date: 20130627
  Serious: Yes (Hospitalization)
  Sender: FDA-Public Use
  Company Number: DE-TEVA-377846USA

PATIENT
  Age: 76 Year
  Sex: Male
  Weight: 68 kg

DRUGS (8)
  1. TREANDA [Suspect]
     Indication: NON-HODGKIN^S LYMPHOMA
     Route: 042
     Dates: start: 20100311
  2. TREANDA [Suspect]
     Dosage: Regimen #2
     Route: 042
     Dates: start: 20100311
  3. RITUXIMAB [Suspect]
     Indication: NON-HODGKIN^S LYMPHOMA
     Route: 042
     Dates: start: 20100311
  4. RITUXIMAB [Suspect]
     Dosage: Regimen #2
     Route: 042
     Dates: start: 20100311
  5. BUDENOFALK [Concomitant]
  6. QUANTALAN [Concomitant]
  7. SALOFALK [Concomitant]
  8. THYROXIN [Concomitant]

REACTIONS (2)
  - Crohn^s disease [Not Recovered/Not Resolved]
  - Diarrhoea [Recovered/Resolved]
